FAERS Safety Report 25157119 (Version 2)
Quarter: 2025Q2

REPORT INFORMATION
  Report Type: Report from Study
  Country: HN (occurrence: HN)
  Receive Date: 20250403
  Receipt Date: 20250415
  Transmission Date: 20250716
  Serious: Yes (Hospitalization)
  Sender: BAYER
  Company Number: HN-BAYER-2025A033332

PATIENT
  Age: 54 Year
  Sex: Female

DRUGS (4)
  1. NEXAVAR [Suspect]
     Active Substance: SORAFENIB
     Indication: Thyroid cancer metastatic
     Dates: start: 20240628, end: 20250115
  2. NEXAVAR [Suspect]
     Active Substance: SORAFENIB
     Indication: Thyroid cancer metastatic
     Dates: start: 20250307
  3. IRBESARTAN [Concomitant]
     Active Substance: IRBESARTAN
     Indication: Blood pressure increased
     Dosage: 300 MG, QD IN THE MORNING
  4. GABAPENTIN [Concomitant]
     Active Substance: GABAPENTIN
     Dosage: 300 MG, BID

REACTIONS (10)
  - Peripheral swelling [Recovering/Resolving]
  - Blood glucose increased [Not Recovered/Not Resolved]
  - Palmar-plantar erythrodysaesthesia syndrome [Recovering/Resolving]
  - Burning sensation [Recovering/Resolving]
  - Inflammation [None]
  - Blister [None]
  - Pain in extremity [Recovered/Resolved]
  - Diabetes mellitus [Unknown]
  - Diabetic foot [None]
  - Palmoplantar keratoderma [Recovered/Resolved]

NARRATIVE: CASE EVENT DATE: 20250201
